FAERS Safety Report 20957344 (Version 3)
Quarter: 2022Q2

REPORT INFORMATION
  Report Type: Spontaneous
  Country: CA (occurrence: CA)
  Receive Date: 20220614
  Receipt Date: 20220621
  Transmission Date: 20220721
  Serious: Yes (Other)
  Sender: FDA-Public Use
  Company Number: CA-PFIZER INC-PV202200001215

PATIENT
  Age: 81 Year
  Sex: Female

DRUGS (7)
  1. AMLODIPINE BESYLATE [Suspect]
     Active Substance: AMLODIPINE BESYLATE
     Indication: Chronic spontaneous urticaria
     Dosage: UNK
     Route: 065
  2. BILASTINE [Suspect]
     Active Substance: BILASTINE
     Dosage: UNK
     Route: 065
  3. PANTOPRAZOLE [Suspect]
     Active Substance: PANTOPRAZOLE
     Indication: Chronic spontaneous urticaria
     Dosage: UNK
     Route: 065
  4. CETIRIZINE HYDROCHLORIDE [Suspect]
     Active Substance: CETIRIZINE HYDROCHLORIDE
     Dosage: UNK
     Route: 065
  5. MONTELUKAST [Concomitant]
     Active Substance: MONTELUKAST SODIUM
     Dosage: UNK
  6. RAPAFLO [Concomitant]
     Active Substance: SILODOSIN
     Dosage: UNK
  7. ZOCOR [Concomitant]
     Active Substance: SIMVASTATIN
     Dosage: UNK

REACTIONS (11)
  - Cerebrovascular accident [Unknown]
  - Kaposi^s sarcoma [Unknown]
  - Dizziness [Unknown]
  - Pruritus [Unknown]
  - Psychological trauma [Unknown]
  - Skin abrasion [Unknown]
  - Skin discolouration [Unknown]
  - Skin lesion [Unknown]
  - Thinking abnormal [Unknown]
  - Urticaria [Unknown]
  - Product use in unapproved indication [Unknown]
